FAERS Safety Report 16412900 (Version 2)
Quarter: 2023Q2

REPORT INFORMATION
  Report Type: Spontaneous
  Country: DE (occurrence: DE)
  Receive Date: 20190611
  Receipt Date: 20230513
  Transmission Date: 20230721
  Serious: Yes (Other)
  Sender: FDA-Public Use
  Company Number: DE-AUROBINDO-AUR-APL-2019-032481

PATIENT
  Age: 69 Year
  Sex: Male
  Weight: 65 kg

DRUGS (15)
  1. LEUCOVORIN [Suspect]
     Active Substance: LEUCOVORIN
     Indication: Colorectal cancer metastatic
     Dosage: 692 MILLIGRAM
     Route: 065
     Dates: start: 20190410
  2. OXALIPLATIN [Suspect]
     Active Substance: OXALIPLATIN
     Indication: Colorectal cancer metastatic
     Dosage: 173 MILLIGRAM
     Route: 065
     Dates: start: 20190410
  3. OXALIPLATIN [Suspect]
     Active Substance: OXALIPLATIN
     Dosage: 138 MILLIGRAM (DOSAGE TEXT:138 MILLIGRAM)
     Route: 065
     Dates: start: 20190508
  4. FLUOROURACIL [Suspect]
     Active Substance: FLUOROURACIL
     Indication: Colorectal cancer metastatic
     Dosage: 4152 MILLIGRAM
     Route: 042
     Dates: start: 20190410
  5. FLUOROURACIL [Suspect]
     Active Substance: FLUOROURACIL
     Dosage: 692 MILLIGRAM
     Route: 040
     Dates: start: 20190410
  6. FLUOROURACIL [Suspect]
     Active Substance: FLUOROURACIL
     Dosage: 4200 MILLIGRAM
     Route: 042
     Dates: start: 20190611
  7. FLUOROURACIL [Suspect]
     Active Substance: FLUOROURACIL
     Dosage: 700 MILLIGRAM
     Route: 042
     Dates: start: 20190611
  8. FLUOROURACIL [Suspect]
     Active Substance: FLUOROURACIL
     Dosage: 3500 MILLIGRAM
     Route: 042
     Dates: start: 20190711
  9. FLUOROURACIL [Suspect]
     Active Substance: FLUOROURACIL
     Dosage: 3580 MILLIGRAM
     Route: 042
     Dates: start: 20191118
  10. VECTIBIX [Suspect]
     Active Substance: PANITUMUMAB
     Indication: Colorectal cancer metastatic
     Dosage: 390 MILLIGRAM
     Route: 042
     Dates: start: 20190410
  11. VECTIBIX [Suspect]
     Active Substance: PANITUMUMAB
     Dosage: 420 MILLIGRAM
     Route: 042
     Dates: start: 20191118
  12. DOXYCYCLIN-RATIOPHARM [Concomitant]
     Indication: Rash
     Dosage: 50 MILLIGRAM, DAILY (DOSAGE TEXT:50 MILLIGRAM, QD)
     Route: 048
     Dates: start: 20190424
  13. ONDANSETRON BETA [Concomitant]
     Indication: Nausea
     Dosage: 8 MILLIGRAM, (DOSAGE TEXT:8 MILLIGRAM, PER CYCLE)
     Route: 042
     Dates: start: 20190410
  14. AMLODIPINE MALEATE [Concomitant]
     Active Substance: AMLODIPINE MALEATE
     Indication: Hypertonia
     Dosage: 5 MILLIGRAM, ONCE A DAY
     Route: 048
     Dates: start: 201904
  15. METOPROLOL TARTRATE [Concomitant]
     Active Substance: METOPROLOL TARTRATE
     Indication: Hypertonia
     Dosage: 950 MILLIGRAM, ONCE A DAY (475 MILLIGRAM, BID)
     Route: 048
     Dates: start: 201904

REACTIONS (1)
  - Polyneuropathy [Recovered/Resolved]

NARRATIVE: CASE EVENT DATE: 20190508
